FAERS Safety Report 15964826 (Version 2)
Quarter: 2019Q1

REPORT INFORMATION
  Report Type: Spontaneous
  Country: CH (occurrence: CH)
  Receive Date: 20190215
  Receipt Date: 20190322
  Transmission Date: 20190418
  Serious: Yes (Other)
  Sender: FDA-Public Use
  Company Number: CH-ASTELLAS-2019US005391

PATIENT
  Age: 14 Year
  Sex: Female

DRUGS (22)
  1. MYCOPHENOLATE MOFETIL. [Concomitant]
     Active Substance: MYCOPHENOLATE MOFETIL
     Indication: LIVER TRANSPLANT
     Dosage: 600 MG/M2, UNKNOWN FREQ. (PER DOSE)
     Route: 065
  2. BASILIXIMAB [Concomitant]
     Active Substance: BASILIXIMAB
     Indication: LIVER TRANSPLANT
     Route: 065
  3. INSULIN [Concomitant]
     Active Substance: INSULIN NOS
     Route: 065
  4. INSULIN [Concomitant]
     Active Substance: INSULIN NOS
     Route: 065
  5. PROGRAF [Suspect]
     Active Substance: TACROLIMUS\TACROLIMUS ANHYDROUS
     Indication: LIVER TRANSPLANT
     Dosage: 2.25 MG, TWICE DAILY (AIMING TROUGH LEVELS OF 8-10 ?G/L) (0.05 MG/KG/DAY)
     Route: 065
  6. INSULIN [Concomitant]
     Active Substance: INSULIN NOS
     Dosage: 1.91 IU/KG, ONCE DAILY (20 DAYS AFTER TRANSPLANT AND 10 DAYS AFTER ISLET TRANSPLANT)
  7. METHYLPREDNISOLONE. [Concomitant]
     Active Substance: METHYLPREDNISOLONE
     Indication: LIVER TRANSPLANT
     Route: 065
  8. PREDNISONE. [Concomitant]
     Active Substance: PREDNISONE
     Indication: LUNG TRANSPLANT
     Route: 065
  9. INSULIN [Concomitant]
     Active Substance: INSULIN NOS
     Route: 065
  10. PROGRAF [Suspect]
     Active Substance: TACROLIMUS\TACROLIMUS ANHYDROUS
     Indication: LUNG TRANSPLANT
     Route: 048
     Dates: start: 20140425
  11. METHYLPREDNISOLONE. [Concomitant]
     Active Substance: METHYLPREDNISOLONE
     Indication: LUNG TRANSPLANT
     Route: 065
  12. MYCOPHENOLATE MOFETIL. [Concomitant]
     Active Substance: MYCOPHENOLATE MOFETIL
     Indication: LUNG TRANSPLANT
  13. PREDNISONE. [Concomitant]
     Active Substance: PREDNISONE
     Indication: LIVER TRANSPLANT
     Route: 065
  14. MYCOPHENOLATE MOFETIL. [Concomitant]
     Active Substance: MYCOPHENOLATE MOFETIL
     Indication: PANCREAS TRANSPLANT
  15. INSULIN [Concomitant]
     Active Substance: INSULIN NOS
     Indication: CYSTIC FIBROSIS RELATED DIABETES
     Dosage: 1.19 IU/KG, ONCE DAILY (BEFOR TRANSPLANT)
  16. INSULIN [Concomitant]
     Active Substance: INSULIN NOS
     Dosage: 0.82 IU/KG, ONCE DAILY
     Route: 065
  17. PREDNISONE. [Concomitant]
     Active Substance: PREDNISONE
     Indication: PANCREAS TRANSPLANT
  18. BASILIXIMAB [Concomitant]
     Active Substance: BASILIXIMAB
     Indication: LUNG TRANSPLANT
     Dosage: 4.20 MG, UNKNOWN FREQ. (H BEFORE AND ON DAY 4 AFTER EACH ISLET TRANSPLANTATION)
     Route: 042
  19. INSULIN [Concomitant]
     Active Substance: INSULIN NOS
     Dosage: 0.94 IU/KG, ONCE DAILY
     Route: 065
  20. PROGRAF [Suspect]
     Active Substance: TACROLIMUS\TACROLIMUS ANHYDROUS
     Indication: PANCREAS TRANSPLANT
  21. METHYLPREDNISOLONE. [Concomitant]
     Active Substance: METHYLPREDNISOLONE
     Indication: PANCREAS TRANSPLANT
     Route: 065
  22. BASILIXIMAB [Concomitant]
     Active Substance: BASILIXIMAB
     Indication: PANCREAS TRANSPLANT
     Dosage: 25 MG, UNKNOWN FREQ. (1 H BEFORE AND ON DAY 3, 7, AND 10 AFTER IT
     Route: 058

REACTIONS (2)
  - Increased insulin requirement [Unknown]
  - Product use in unapproved indication [Unknown]
